FAERS Safety Report 23285755 (Version 1)
Quarter: 2023Q4

REPORT INFORMATION
  Report Type: Spontaneous
  Country: None (occurrence: US)
  Receive Date: 20231212
  Receipt Date: 20231212
  Transmission Date: 20240110
  Serious: Yes (Other)
  Sender: FDA-Public Use
  Company Number: US-Harrow Eye-2149217

PATIENT
  Sex: Female

DRUGS (11)
  1. AZITHROMYCIN [Suspect]
     Active Substance: AZITHROMYCIN
     Indication: Mycobacterium abscessus infection
  2. CIPROFLOXACIN [Suspect]
     Active Substance: CIPROFLOXACIN
  3. MOXIFLOXACIN [Suspect]
     Active Substance: MOXIFLOXACIN
  4. TOBRAMYCIN [Suspect]
     Active Substance: TOBRAMYCIN
  5. CEFOXITIN [Suspect]
     Active Substance: CEFOXITIN SODIUM
  6. AMIKACIN [Suspect]
     Active Substance: AMIKACIN
  7. IMIPENEM [Suspect]
     Active Substance: IMIPENEM
  8. DOXYCYCLINE [Suspect]
     Active Substance: DOXYCYCLINE
  9. LINEZOLID [Concomitant]
     Active Substance: LINEZOLID
  10. CLARITHROMYCIN [Concomitant]
     Active Substance: CLARITHROMYCIN
  11. BACTRIM [Concomitant]
     Active Substance: SULFAMETHOXAZOLE\TRIMETHOPRIM

REACTIONS (9)
  - Renal failure [Unknown]
  - Anaphylactic reaction [Unknown]
  - Pyrexia [Unknown]
  - Pulmonary mass [Unknown]
  - Drug hypersensitivity [Unknown]
  - Drug intolerance [Unknown]
  - Drug resistance [Unknown]
  - Condition aggravated [Unknown]
  - Product use in unapproved indication [Unknown]
